FAERS Safety Report 19056873 (Version 1)
Quarter: 2021Q1

REPORT INFORMATION
  Report Type: Spontaneous
  Country: US (occurrence: US)
  Receive Date: 20210325
  Receipt Date: 20210325
  Transmission Date: 20210420
  Serious: Yes (Disabling, Other)
  Sender: FDA-Public Use
  Company Number: None

PATIENT

DRUGS (1)
  1. CANNABIS [Suspect]
     Active Substance: CANNABIS SATIVA SUBSP. INDICA TOP

REACTIONS (17)
  - Parosmia [None]
  - Physical disability [None]
  - Tooth disorder [None]
  - Blister [None]
  - Skin burning sensation [None]
  - Cold sweat [None]
  - Gingival disorder [None]
  - Condition aggravated [None]
  - Mouth haemorrhage [None]
  - Urinary incontinence [None]
  - Neuropathy peripheral [None]
  - Cough [None]
  - Seizure [None]
  - Erythema [None]
  - Skin haemorrhage [None]
  - Anal incontinence [None]
  - Epistaxis [None]
